FAERS Safety Report 8790589 (Version 1)
Quarter: 2012Q4

REPORT INFORMATION
  Report Type: Spontaneous
  Country: None (occurrence: None)
  Receive Date: 20120905
  Receipt Date: 20120905
  Transmission Date: 20130627
  Serious: Yes (Other)
  Sender: FDA-Public Use
  Company Number: AUR-APL-2012-03661

PATIENT
  Age: 44 Year
  Sex: Female
  Weight: 104 kg

DRUGS (11)
  1. METFORMIN (METFORMIN) [Suspect]
     Indication: DRUG USE FOR UNKNOWN INDICATION
     Dates: start: 20120509
  2. AMLOSTIN (AMLODIPINE) [Concomitant]
  3. ATORVASTATIN (ATORVASTATIN) [Concomitant]
  4. BENDROFLUMETHIAZIDE (BENDROFLUMETHIAZIDE) [Concomitant]
  5. BUDESONIDE (BUDESONIDE) [Concomitant]
  6. CITALOPRAM (CITALOPRAM) [Concomitant]
  7. CO-CODAMOL (PANADEINE CO) [Concomitant]
  8. DOXAZOSIN (DOXAZOSIN) [Concomitant]
  9. RAMIPRIL (RAMIPRIL) [Concomitant]
  10. SIMVASTATIN (SIMVASTATIN) [Concomitant]
  11. VENTOLIN (SALBUTAMOL) [Concomitant]

REACTIONS (1)
  - Asthma [None]
